FAERS Safety Report 5285680-3 (Version None)
Quarter: 2007Q1

REPORT INFORMATION
  Report Type: 
  Country: None (occurrence: None)
  Receive Date: 20070126
  Receipt Date: 20060404
  Transmission Date: 20070707
  Serious: No
  Sender: FDA-Public Use
  Company Number: 2006CT001157

PATIENT
  Age: 62 Year
  Sex: Male
  Weight: 85 kg

DRUGS (9)
  1. VENTAVIS [Suspect]
     Indication: PULMONARY HYPERTENSION
     Dosage: 5 UG;6XD;INH
     Route: 055
     Dates: start: 20050621, end: 20060512
  2. DIGITEK [Concomitant]
  3. TRACLEER [Concomitant]
  4. ACETYLCYSTEINE [Concomitant]
  5. IMURAN [Concomitant]
  6. K-DUR 10 [Concomitant]
  7. LASIX [Concomitant]
  8. ACIPHEX [Concomitant]
  9. OXYGEN [Concomitant]

REACTIONS (2)
  - GINGIVITIS [None]
  - HAEMATOCRIT DECREASED [None]
